FAERS Safety Report 11788741 (Version 1)
Quarter: 2015Q4

REPORT INFORMATION
  Report Type: Spontaneous
  Country: US (occurrence: None)
  Receive Date: 20151130
  Receipt Date: 20151130
  Transmission Date: 20160305
  Serious: Yes (Other)
  Sender: FDA-Public Use
  Company Number: None

PATIENT
  Age: 54 Year
  Weight: 61.24 kg

DRUGS (5)
  1. PROAIR HFA [Suspect]
     Active Substance: ALBUTEROL SULFATE
     Indication: ASTHMA
     Dosage: PRN?FOUR TIMES DAILY ?INHALATION
     Route: 055
  2. NEIL MED NASAMIST [Concomitant]
  3. FAMOTIDINE. [Concomitant]
     Active Substance: FAMOTIDINE
  4. SYMBIRCORT [Concomitant]
  5. ZYRTEC [Concomitant]
     Active Substance: CETIRIZINE HYDROCHLORIDE

REACTIONS (3)
  - Device occlusion [None]
  - Device issue [None]
  - Asthma [None]

NARRATIVE: CASE EVENT DATE: 20131101
